FAERS Safety Report 20547672 (Version 1)
Quarter: 2022Q1

REPORT INFORMATION
  Report Type: Spontaneous
  Country: KZ (occurrence: KZ)
  Receive Date: 20220303
  Receipt Date: 20220303
  Transmission Date: 20220423
  Serious: Yes (Other)
  Sender: FDA-Public Use
  Company Number: KZ-TAKEDA-2022TUS013623

PATIENT
  Age: 40 Year
  Sex: Male

DRUGS (5)
  1. ENTYVIO [Suspect]
     Active Substance: VEDOLIZUMAB
     Indication: Calciphylaxis
     Dosage: UNK
     Route: 042
     Dates: start: 20211026, end: 20220201
  2. ENTYVIO [Suspect]
     Active Substance: VEDOLIZUMAB
     Indication: Drug dependence
  3. ENTYVIO [Suspect]
     Active Substance: VEDOLIZUMAB
     Indication: Autoimmune hepatitis
  4. ENTYVIO [Suspect]
     Active Substance: VEDOLIZUMAB
     Indication: Cholangitis sclerosing
  5. ENTYVIO [Suspect]
     Active Substance: VEDOLIZUMAB
     Indication: Lesion excision

REACTIONS (4)
  - Colitis ulcerative [Unknown]
  - Cholangitis sclerosing [Unknown]
  - Weight decreased [Unknown]
  - Anal fistula [Unknown]
